FAERS Safety Report 7592240-8 (Version None)
Quarter: 2011Q3

REPORT INFORMATION
  Report Type: 
  Country: None (occurrence: None)
  Receive Date: 20110706
  Receipt Date: 20110624
  Transmission Date: 20111222
  Serious: Yes (Hospitalization)
  Sender: FDA-Public Use
  Company Number: US-ELI_LILLY_AND_COMPANY-US201011000277

PATIENT
  Sex: Female
  Weight: 51 kg

DRUGS (7)
  1. LORAZEPAM [Concomitant]
     Dosage: UNK, PRN
  2. FORTEO [Suspect]
     Dosage: 20 UG, DAILY (1/D)
     Route: 065
  3. FORTEO [Suspect]
     Indication: OSTEOPOROSIS
     Dosage: 20 UG, DAILY (1/D)
     Route: 065
     Dates: start: 20101001
  4. VICODIN [Concomitant]
  5. FORTEO [Suspect]
     Dosage: 20 UG, QD
     Dates: end: 20110301
  6. LISINOPRIL [Concomitant]
  7. DIAZIDE [Concomitant]

REACTIONS (9)
  - ARTHRALGIA [None]
  - VITAMIN B12 INCREASED [None]
  - BACK PAIN [None]
  - FATIGUE [None]
  - BLOOD CALCIUM INCREASED [None]
  - ASTHENIA [None]
  - INSOMNIA [None]
  - HERNIA HIATUS REPAIR [None]
  - INTENTIONAL DRUG MISUSE [None]
